FAERS Safety Report 13896560 (Version 1)
Quarter: 2017Q3

REPORT INFORMATION
  Report Type: Spontaneous
  Country: US (occurrence: US)
  Receive Date: 20170821
  Receipt Date: 20170821
  Transmission Date: 20171127
  Serious: Yes (Other)
  Sender: FDA-Public Use
  Company Number: None

PATIENT
  Age: 47 Year
  Sex: Female
  Weight: 76.5 kg

DRUGS (3)
  1. WELLBUTRIN XL [Suspect]
     Active Substance: BUPROPION HYDROCHLORIDE
     Indication: DEPRESSION
     Dosage: ?          QUANTITY:1 TABLET(S);?
     Route: 048
     Dates: start: 20170724, end: 20170726
  2. WELLBUTRIN XL [Suspect]
     Active Substance: BUPROPION HYDROCHLORIDE
     Indication: ANXIETY
     Dosage: ?          QUANTITY:1 TABLET(S);?
     Route: 048
     Dates: start: 20170724, end: 20170726
  3. XANAX [Concomitant]
     Active Substance: ALPRAZOLAM

REACTIONS (5)
  - Eyelid oedema [None]
  - Pruritus [None]
  - Urticaria [None]
  - Hypersensitivity [None]
  - Lip swelling [None]

NARRATIVE: CASE EVENT DATE: 20170726
